FAERS Safety Report 23202644 (Version 1)
Quarter: 2023Q4

REPORT INFORMATION
  Report Type: Report from Study
  Country: CA (occurrence: CA)
  Receive Date: 20231120
  Receipt Date: 20231120
  Transmission Date: 20240110
  Serious: Yes (Other)
  Sender: FDA-Public Use
  Company Number: CA-JNJFOC-20230856374

PATIENT
  Age: 20 Year
  Sex: Male

DRUGS (2)
  1. REMICADE [Suspect]
     Active Substance: INFLIXIMAB
     Indication: Colitis ulcerative
     Dosage: ON 22-AUG-2023, PATIENT RECEIVED 28TH INFLIXIMAB, RECOMBINANT  INFUSION OF 500 MG, PARTIAL MAYO COMP
     Route: 042
     Dates: start: 20210810
  2. REMICADE [Suspect]
     Active Substance: INFLIXIMAB
     Dosage: ON 14-NOV-2023, PATIENT RECEIVED 31ST INFLIXIMAB, RECOMBINANT  INFUSION OF 500 MG, PARTIAL MAYO COMP
     Route: 042

REACTIONS (2)
  - Haematochezia [Unknown]
  - General physical health deterioration [Unknown]

NARRATIVE: CASE EVENT DATE: 20230821
